FAERS Safety Report 7984753-1 (Version None)
Quarter: 2011Q4

REPORT INFORMATION
  Report Type: 
  Country: None (occurrence: None)
  Receive Date: 20111216
  Receipt Date: 20111209
  Transmission Date: 20120403
  Serious: Yes (Other)
  Sender: FDA-Public Use
  Company Number: AU-AMGEN-AUSSP2011063313

PATIENT
  Age: 53 Year
  Sex: Male

DRUGS (2)
  1. ENBREL [Suspect]
     Indication: ANKYLOSING SPONDYLITIS
     Dosage: 50 MG, QWK
     Dates: start: 20111001
  2. VOLTAREN [Concomitant]
     Dosage: UNK

REACTIONS (8)
  - FLUSHING [None]
  - EYE SWELLING [None]
  - HYPOAESTHESIA ORAL [None]
  - HYPOAESTHESIA [None]
  - ANGIOEDEMA [None]
  - SWOLLEN TONGUE [None]
  - HEART RATE INCREASED [None]
  - BLOOD PRESSURE INCREASED [None]
